FAERS Safety Report 12420209 (Version 1)
Quarter: 2016Q2

REPORT INFORMATION
  Report Type: Spontaneous
  Country: US (occurrence: US)
  Receive Date: 20160531
  Receipt Date: 20160531
  Transmission Date: 20160815
  Serious: Yes (Hospitalization, Other)
  Sender: FDA-Public Use
  Company Number: US-009507513-1504USA014931

PATIENT
  Age: 58 Year
  Sex: Male
  Weight: 84 kg

DRUGS (3)
  1. CUBICIN [Suspect]
     Active Substance: DAPTOMYCIN
     Indication: OFF LABEL USE
  2. CUBICIN [Suspect]
     Active Substance: DAPTOMYCIN
     Indication: OSTEOMYELITIS
     Dosage: 8.9 MG/KG, (750 MG) UNK
     Route: 065
  3. MK-0733 [Suspect]
     Active Substance: SIMVASTATIN
     Indication: PRODUCT USED FOR UNKNOWN INDICATION
     Dosage: 40 MG, UNK
     Route: 065

REACTIONS (5)
  - Myalgia [Unknown]
  - Toxicity to various agents [Unknown]
  - Rhabdomyolysis [Recovered/Resolved]
  - Blood creatine phosphokinase increased [Unknown]
  - Myopathy [Unknown]
